FAERS Safety Report 17635240 (Version 1)
Quarter: 2020Q2

REPORT INFORMATION
  Report Type: Spontaneous
  Country: JP (occurrence: JP)
  Receive Date: 20200407
  Receipt Date: 20200407
  Transmission Date: 20200713
  Serious: Yes (Other)
  Sender: FDA-Public Use
  Company Number: JP-TEVA-2020-JP-1220507

PATIENT
  Age: 75 Year
  Sex: Female

DRUGS (1)
  1. AZILECT [Suspect]
     Active Substance: RASAGILINE MESYLATE
     Indication: THERAPEUTIC RESPONSE SHORTENED
     Dosage: 1 MILLIGRAM DAILY;
     Route: 048
     Dates: start: 20190701

REACTIONS (2)
  - Fall [Unknown]
  - Femur fracture [Unknown]
